FAERS Safety Report 7611295-5 (Version None)
Quarter: 2011Q3

REPORT INFORMATION
  Report Type: 
  Country: None (occurrence: None)
  Receive Date: 20110715
  Receipt Date: 20110706
  Transmission Date: 20111222
  Serious: Yes (Other)
  Sender: FDA-Public Use
  Company Number: US-SANOFI-AVENTIS-2011SA043433

PATIENT
  Age: 71 Year
  Sex: Male

DRUGS (3)
  1. LANTUS [Suspect]
     Indication: TYPE 2 DIABETES MELLITUS
     Dosage: DOSE:32 UNIT(S)
     Route: 058
  2. HUMALOG [Concomitant]
  3. OPTICLICK [Suspect]
     Indication: TYPE 2 DIABETES MELLITUS

REACTIONS (5)
  - APPENDICECTOMY [None]
  - RENAL TRANSPLANT [None]
  - INJECTION SITE REACTION [None]
  - VASCULAR GRAFT [None]
  - BLOOD PRESSURE INCREASED [None]
